FAERS Safety Report 6348347-6 (Version None)
Quarter: 2009Q3

REPORT INFORMATION
  Report Type: 
  Country: None (occurrence: None)
  Receive Date: 20090908
  Receipt Date: 20090827
  Transmission Date: 20100115
  Serious: Yes (Hospitalization)
  Sender: FDA-Public Use
  Company Number: 2009AL005652

PATIENT
  Age: 14 Year
  Sex: Female

DRUGS (4)
  1. RIFAMPIN [Suspect]
     Indication: STAPHYLOCOCCAL INFECTION
     Dosage: PO
     Route: 048
  2. SULFATRIM PEDIATRIC [Suspect]
     Indication: STAPHYLOCOCCAL INFECTION
  3. CIPROFLAXACIN [Concomitant]
  4. AMIKACIN [Concomitant]

REACTIONS (13)
  - BLOOD LACTATE DEHYDROGENASE INCREASED [None]
  - DIALYSIS [None]
  - DRUG TOXICITY [None]
  - FATIGUE [None]
  - GRAVITATIONAL OEDEMA [None]
  - HAEMOLYTIC ANAEMIA [None]
  - OEDEMA [None]
  - RENAL FAILURE [None]
  - RENAL FAILURE ACUTE [None]
  - RENAL TUBULAR NECROSIS [None]
  - RETICULOCYTOPENIA [None]
  - THROMBOCYTOPENIA [None]
  - WEIGHT INCREASED [None]
